FAERS Safety Report 13004674 (Version 4)
Quarter: 2017Q1

REPORT INFORMATION
  Report Type: Spontaneous
  Country: IT (occurrence: IT)
  Receive Date: 20161207
  Receipt Date: 20170104
  Transmission Date: 20170428
  Serious: Yes (Hospitalization, Other)
  Sender: FDA-Public Use
  Company Number: IT-009507513-1612ITA001357

PATIENT
  Age: 79 Year
  Sex: Male
  Weight: 90 kg

DRUGS (2)
  1. KEYTRUDA [Suspect]
     Active Substance: PEMBROLIZUMAB
     Indication: ACRAL LENTIGINOUS MELANOMA STAGE I
     Dosage: 180 MG, (6TH CYCLE), CYCLICAL
     Route: 042
     Dates: start: 20161021, end: 20161021
  2. SODIUM CHLORIDE. [Concomitant]
     Active Substance: SODIUM CHLORIDE
     Dosage: 100 ML, UNK
     Route: 042
     Dates: start: 20161021, end: 20161021

REACTIONS (6)
  - Dysphagia [Unknown]
  - Autoimmune hepatitis [Unknown]
  - Autoimmune thyroiditis [Unknown]
  - Lethargy [Unknown]
  - Stomatitis [Unknown]
  - Hypothyroidism [Unknown]

NARRATIVE: CASE EVENT DATE: 20161125
